FAERS Safety Report 4273863-0 (Version None)
Quarter: 2004Q1

REPORT INFORMATION
  Report Type: 
  Country: None (occurrence: None)
  Receive Date: 20040115
  Receipt Date: 20031229
  Transmission Date: 20041129
  Serious: Yes (Other)
  Sender: FDA-Public Use
  Company Number: USA031255432

PATIENT
  Age: 70 Year
  Sex: Female
  Weight: 91 kg

DRUGS (1)
  1. HUMULIN 70/30 [Suspect]
     Dates: start: 20000101

REACTIONS (8)
  - BLOOD GLUCOSE FLUCTUATION [None]
  - BREAST CANCER [None]
  - FIBROMYALGIA [None]
  - GASTROINTESTINAL DISORDER [None]
  - HERNIA [None]
  - MEMORY IMPAIRMENT [None]
  - NERVOUSNESS [None]
  - POSTOPERATIVE INFECTION [None]
